FAERS Safety Report 9484132 (Version 2)
Quarter: 2013Q3

REPORT INFORMATION
  Report Type: Spontaneous
  Country: CA (occurrence: CA)
  Receive Date: 20130828
  Receipt Date: 20130828
  Transmission Date: 20140515
  Serious: Yes (Death)
  Sender: FDA-Public Use
  Company Number: CA-AMGEN-KDL284994

PATIENT
  Age: 58 Year
  Sex: Male
  Weight: 109 kg

DRUGS (6)
  1. ENBREL [Suspect]
     Indication: PSORIATIC ARTHROPATHY
     Dosage: UNK UNK, QWK
     Route: 065
     Dates: start: 20080604
  2. GLIBENCLAMIDE [Concomitant]
     Dosage: 5 MG, UNK
  3. FOLIC ACID [Concomitant]
     Dosage: 5 MG, UNK
  4. BUPROPION [Concomitant]
     Dosage: 150 MG, UNK
  5. HYDROCHLOROTHIAZIDE [Concomitant]
     Dosage: 12 MG, UNK
  6. DIVALPROEX SODIUM [Concomitant]
     Dosage: UNK UNK, UNK

REACTIONS (4)
  - Death [Fatal]
  - Insomnia [Not Recovered/Not Resolved]
  - Skin discolouration [Not Recovered/Not Resolved]
  - Injection site bruising [Not Recovered/Not Resolved]
